FAERS Safety Report 16386203 (Version 2)
Quarter: 2020Q3

REPORT INFORMATION
  Report Type: Report from Study
  Country: IT (occurrence: IT)
  Receive Date: 20190603
  Receipt Date: 20190722
  Transmission Date: 20201104
  Serious: Yes (Life-Threatening, Hospitalization)
  Sender: FDA-Public Use
  Company Number: IT-PFIZER INC-2019230641

PATIENT
  Age: 63 Year
  Sex: Male
  Weight: 90 kg

DRUGS (11)
  1. METHYLPREDNISOLONE. [Suspect]
     Active Substance: METHYLPREDNISOLONE
     Dosage: 70 MG, QD
     Dates: start: 20190403, end: 20190404
  2. METHYLPREDNISOLONE. [Suspect]
     Active Substance: METHYLPREDNISOLONE
     Dosage: 40 MG, QD
     Dates: start: 20190406
  3. METHYLPREDNISOLONE. [Suspect]
     Active Substance: METHYLPREDNISOLONE
     Dosage: 50 MG, QD
     Dates: start: 20190405, end: 20190405
  4. METHYLPREDNISOLONE. [Suspect]
     Active Substance: METHYLPREDNISOLONE
     Dosage: 180 MG, QD
     Dates: start: 20190320, end: 20190327
  5. BLINDED THERAPY [Suspect]
     Active Substance: INVESTIGATIONAL PRODUCT
     Indication: ACUTE GRAFT VERSUS HOST DISEASE
     Dosage: UNK
     Dates: start: 20190319, end: 20190325
  6. METHYLPREDNISOLONE. [Suspect]
     Active Substance: METHYLPREDNISOLONE
     Indication: ACUTE GRAFT VERSUS HOST DISEASE
     Dosage: 220 MG, QD
     Dates: start: 20190319, end: 20190319
  7. METHYLPREDNISOLONE. [Suspect]
     Active Substance: METHYLPREDNISOLONE
     Dosage: 90 MG, QD
     Dates: start: 20190329, end: 20190329
  8. RUXOLITINIB [Concomitant]
     Active Substance: RUXOLITINIB
     Dosage: UNK
     Dates: start: 20190401
  9. METHYLPREDNISOLONE. [Suspect]
     Active Substance: METHYLPREDNISOLONE
     Dosage: 120 MG, QD
     Dates: start: 20190402, end: 20190402
  10. METHYLPREDNISOLONE. [Suspect]
     Active Substance: METHYLPREDNISOLONE
     Dosage: 140 MG, QD
     Dates: start: 20190330, end: 20190401
  11. CYCLOPHOSPHAMIDE ANHYDROUS. [Suspect]
     Active Substance: CYCLOPHOSPHAMIDE ANHYDROUS
     Dosage: UNK
     Dates: start: 20190326, end: 20190326

REACTIONS (2)
  - Sepsis [Recovered/Resolved]
  - Klebsiella infection [Recovered/Resolved]

NARRATIVE: CASE EVENT DATE: 20190406
